FAERS Safety Report 4710426-4 (Version None)
Quarter: 2005Q3

REPORT INFORMATION
  Report Type: 
  Country: None (occurrence: None)
  Receive Date: 20050711
  Receipt Date: 20050628
  Transmission Date: 20060218
  Serious: Yes (Hospitalization)
  Sender: FDA-Public Use
  Company Number: PHHO2005GB10322

PATIENT
  Age: 33 Year
  Sex: Female

DRUGS (5)
  1. SYNTOCINON [Suspect]
     Dosage: 10 IU
     Route: 042
     Dates: start: 20050613, end: 20050613
  2. MISOPROSTOL [Suspect]
     Dosage: 50UG/25UG/25UG
     Route: 067
     Dates: start: 20050612, end: 20050612
  3. PETHIDINE [Concomitant]
  4. PROCHLORPERAZINE [Concomitant]
  5. RANITIDINE [Concomitant]

REACTIONS (4)
  - CAESAREAN SECTION [None]
  - DRUG EXPOSURE DURING PREGNANCY [None]
  - DRUG INEFFECTIVE [None]
  - UTERINE HYPOTONUS [None]
